FAERS Safety Report 8494169-X (Version None)
Quarter: 2012Q3

REPORT INFORMATION
  Report Type: 
  Country: None (occurrence: None)
  Receive Date: 20120709
  Receipt Date: 20120703
  Transmission Date: 20120928
  Serious: Yes (Hospitalization, Other)
  Sender: FDA-Public Use
  Company Number: PHHY2012PK039296

PATIENT
  Age: 27 Year
  Sex: Male

DRUGS (4)
  1. CYCLOSPORINE [Suspect]
     Indication: RENAL TRANSPLANT
  2. TACROLIMUS [Suspect]
  3. DELTACORTRIL [Suspect]
     Indication: RENAL TRANSPLANT
  4. AZATHIOPRINE [Suspect]
     Indication: RENAL TRANSPLANT

REACTIONS (5)
  - HEPATIC FIBROSIS [None]
  - DIABETES MELLITUS [None]
  - HEPATITIS CHOLESTATIC [None]
  - HEPATITIS C [None]
  - PYELONEPHRITIS [None]
